FAERS Safety Report 11719681 (Version 9)
Quarter: 2019Q1

REPORT INFORMATION
  Report Type: Spontaneous
  Country: US (occurrence: US)
  Receive Date: 20151110
  Receipt Date: 20190312
  Transmission Date: 20190417
  Serious: Yes (Hospitalization, Other)
  Sender: FDA-Public Use
  Company Number: US-DSJP-DSU-2015-118916

PATIENT

DRUGS (5)
  1. BENICAR HCT [Suspect]
     Active Substance: HYDROCHLOROTHIAZIDE\OLMESARTAN MEDOXOMIL
     Indication: HYPERTENSION
     Dosage: 20/12.5MG, QD
     Route: 048
     Dates: start: 20091201
  2. BENICAR HCT [Suspect]
     Active Substance: HYDROCHLOROTHIAZIDE\OLMESARTAN MEDOXOMIL
     Dosage: 40/25, UNK
     Dates: start: 20091201
  3. BENICAR HCT [Suspect]
     Active Substance: HYDROCHLOROTHIAZIDE\OLMESARTAN MEDOXOMIL
     Dosage: 20/12.5MG, QD
     Dates: start: 20100623, end: 20120603
  4. BENICAR [Suspect]
     Active Substance: OLMESARTAN MEDOXOMIL
     Indication: PRODUCT USED FOR UNKNOWN INDICATION
     Dosage: 20 MG, QD
     Route: 048
     Dates: start: 20091201, end: 20120613
  5. ASPIRIN                            /00002701/ [Concomitant]
     Active Substance: ASPIRIN
     Indication: PRODUCT USED FOR UNKNOWN INDICATION
     Dosage: 81 MG, QD
     Route: 048

REACTIONS (12)
  - Diverticulitis [Unknown]
  - Enteritis [Unknown]
  - Gallbladder disorder [Recovered/Resolved]
  - Hypovolaemic shock [Unknown]
  - Coeliac disease [Unknown]
  - Acute kidney injury [Unknown]
  - Diaphragmatic hernia [Unknown]
  - Sprue-like enteropathy [Recovering/Resolving]
  - Polyp [Unknown]
  - Liver function test abnormal [Recovered/Resolved]
  - Diverticulum intestinal [Unknown]
  - Fistula of small intestine [Unknown]

NARRATIVE: CASE EVENT DATE: 20120201
